FAERS Safety Report 15498170 (Version 6)
Quarter: 2019Q1

REPORT INFORMATION
  Report Type: Spontaneous
  Country: US (occurrence: US)
  Receive Date: 20181015
  Receipt Date: 20190329
  Transmission Date: 20190417
  Serious: Yes (Other)
  Sender: FDA-Public Use
  Company Number: US-PFIZER INC-2018418630

PATIENT
  Age: 40 Year
  Sex: Male

DRUGS (32)
  1. REMERON [Concomitant]
     Active Substance: MIRTAZAPINE
     Dosage: 15 MG, DAILY (AT BEDTIME)
     Route: 048
  2. CELEXA [Concomitant]
     Active Substance: CITALOPRAM HYDROBROMIDE
     Dosage: 1 DF, DAILY
     Route: 048
     Dates: start: 20130822
  3. DILANTIN [Suspect]
     Active Substance: PHENYTOIN
     Dosage: 6 DF, DAILY
     Route: 048
     Dates: start: 20160623, end: 20161214
  4. IBUPROFEN. [Concomitant]
     Active Substance: IBUPROFEN
     Dosage: 600 MG, 3X/DAY (WITH FOOD, AS DIRECTED)
     Route: 048
     Dates: start: 20170818, end: 20180302
  5. OMEPRAZOLE DR [Concomitant]
     Active Substance: OMEPRAZOLE
     Dosage: 20 MG, 2X/DAY (BEFORE MEAL, AS DIRECTED)
     Route: 048
     Dates: start: 20171120, end: 20171120
  6. LORATADINE. [Concomitant]
     Active Substance: LORATADINE
     Dosage: 10 MG, DAILY (AS DIRECTED)
     Route: 048
  7. AMBIEN [Concomitant]
     Active Substance: ZOLPIDEM TARTRATE
     Dosage: 5 MG, DAILY (AT BED TIME)
     Route: 048
     Dates: start: 20180823
  8. CAPMIST DM [Concomitant]
     Active Substance: DEXTROMETHORPHAN HYDROBROMIDE\GUAIFENESIN\PSEUDOEPHEDRINE HYDROCHLORIDE
     Dosage: UNK
  9. ALBUTEROL SULFATE HFA [Concomitant]
     Active Substance: ALBUTEROL SULFATE
     Dosage: 90 UG, AS NEEDED (EVERY 4 TO 6 HOURS)
     Dates: start: 20131001
  10. PREVACID [Concomitant]
     Active Substance: LANSOPRAZOLE
     Dosage: 30 MG, DAILY (BEFORE A MEAL)
     Route: 048
     Dates: start: 20161017
  11. VIMPAT [Concomitant]
     Active Substance: LACOSAMIDE
     Dosage: 100 MG, 2X/DAY (AS DIRECTED)
     Route: 048
     Dates: start: 20161214
  12. IBUPROFEN. [Concomitant]
     Active Substance: IBUPROFEN
     Dosage: 600 MG, 3X/DAY (WITH FOOD, AS DIRECTED)
     Route: 048
     Dates: start: 20161130, end: 20170324
  13. CYCLOBENZAPRINE. [Concomitant]
     Active Substance: CYCLOBENZAPRINE
     Dosage: 5 MG, DAILY (AT BED TIME, AS DIRECTED)
     Route: 048
  14. GUAIFENESIN AC [Concomitant]
     Active Substance: CODEINE PHOSPHATE\GUAIFENESIN
     Indication: COUGH
     Dosage: UNK, (2 TEASPOONS, EVERY 6 HOURS) AS NEEDED (PRN)
     Route: 048
  15. DILANTIN [Suspect]
     Active Substance: PHENYTOIN
     Indication: GENERALISED TONIC-CLONIC SEIZURE
     Dosage: 6 DF, DAILY
     Route: 048
     Dates: start: 1993
  16. ALPRAZOLAM. [Concomitant]
     Active Substance: ALPRAZOLAM
     Dosage: 1 MG, 3X/DAY, AS DIRECTED
     Route: 048
  17. AMBIEN [Concomitant]
     Active Substance: ZOLPIDEM TARTRATE
     Dosage: 5 MG, DAILY (AT BED TIME)
     Route: 048
     Dates: start: 20180524
  18. AMBIEN [Concomitant]
     Active Substance: ZOLPIDEM TARTRATE
     Dosage: 10 MG (1/2 TO 1 TABLET), DAILY AT BEDTIME
     Dates: start: 20190228
  19. ETODOLAC. [Concomitant]
     Active Substance: ETODOLAC
     Dosage: 400 MG, 3X/DAY
     Route: 048
  20. LAMOTRIGINE. [Concomitant]
     Active Substance: LAMOTRIGINE
     Dosage: UNK
  21. IBUPROFEN. [Concomitant]
     Active Substance: IBUPROFEN
     Dosage: 600 MG, 3X/DAY (WITH FOOD, AS DIRECTED)
     Route: 048
     Dates: start: 20170324
  22. TRAZODONE [Concomitant]
     Active Substance: TRAZODONE HYDROCHLORIDE
     Dosage: 50 MG, DAILY (AT BEDTIME)
     Route: 048
  23. DILANTIN [Suspect]
     Active Substance: PHENYTOIN
     Dosage: 6 DF, DAILY
     Route: 048
     Dates: start: 20140512, end: 20141022
  24. DILANTIN [Suspect]
     Active Substance: PHENYTOIN
     Dosage: 6 DF, DAILY
     Route: 048
     Dates: start: 20151201
  25. AMBIEN [Concomitant]
     Active Substance: ZOLPIDEM TARTRATE
     Dosage: 5 MG, DAILY (AT BED TIME, AS DIRECTED)
     Route: 048
  26. MONTELUKAST SODIUM. [Concomitant]
     Active Substance: MONTELUKAST SODIUM
     Dosage: 10 MG, DAILY (EVERY NIGHT)
     Route: 048
  27. DILANTIN [Suspect]
     Active Substance: PHENYTOIN
     Dosage: 6 DF, DAILY
     Route: 048
     Dates: start: 20141022
  28. VIMPAT [Concomitant]
     Active Substance: LACOSAMIDE
     Dosage: 100 MG, 2X/DAY
     Route: 048
     Dates: start: 20170303
  29. CLOMIPRAMINE [Concomitant]
     Active Substance: CLOMIPRAMINE
     Dosage: UNK
  30. DILANTIN [Suspect]
     Active Substance: PHENYTOIN
     Dosage: 6 DF, DAILY
     Route: 048
     Dates: start: 20160620, end: 20160623
  31. SINGULAIR [Concomitant]
     Active Substance: MONTELUKAST SODIUM
     Dosage: 10 MG, DAILY (EVERY EVENING, AS DIRECTED)
     Route: 048
     Dates: start: 20171120, end: 20171120
  32. NAPROXEN. [Concomitant]
     Active Substance: NAPROXEN
     Dosage: 500 MG, 2X/DAY
     Route: 048

REACTIONS (6)
  - Cerebellar atrophy [Not Recovered/Not Resolved]
  - Fall [Unknown]
  - Depression [Not Recovered/Not Resolved]
  - Cerebral atrophy [Unknown]
  - Asthenia [Unknown]
  - Muscular weakness [Unknown]

NARRATIVE: CASE EVENT DATE: 2016
